FAERS Safety Report 6985029-1 (Version None)
Quarter: 2010Q3

REPORT INFORMATION
  Report Type: 
  Country: None (occurrence: None)
  Receive Date: 20100915
  Receipt Date: 20100904
  Transmission Date: 20110219
  Serious: Yes (Death, Other)
  Sender: FDA-Public Use
  Company Number: US-BAXTER-2010BH022994

PATIENT
  Age: 65 Year
  Sex: Male

DRUGS (1)
  1. DIANEAL [Suspect]
     Indication: RENAL FAILURE CHRONIC
     Route: 033
     Dates: start: 20100819, end: 20100902

REACTIONS (2)
  - MYOCARDIAL INFARCTION [None]
  - PERITONEAL CLOUDY EFFLUENT [None]
